FAERS Safety Report 14510020 (Version 2)
Quarter: 2018Q2

REPORT INFORMATION
  Report Type: Spontaneous
  Country: JP (occurrence: JP)
  Receive Date: 20180209
  Receipt Date: 20180525
  Transmission Date: 20180711
  Serious: Yes (Other)
  Sender: FDA-Public Use
  Company Number: JP-JT-EVA201800321KERYXP-001

PATIENT
  Age: 77 Year
  Sex: Male

DRUGS (10)
  1. BAYASPIRIN [Concomitant]
     Active Substance: ASPIRIN
     Indication: AORTIC VALVE STENOSIS
     Dosage: 100 MG, QD
     Route: 048
  2. MAINTATE [Concomitant]
     Active Substance: BISOPROLOL FUMARATE
     Indication: CARDIAC FAILURE
     Dosage: 3.75 MG, QD
     Route: 048
  3. FOSRENOL [Concomitant]
     Active Substance: LANTHANUM CARBONATE
     Indication: HYPERPHOSPHATAEMIA
     Dosage: 500 MG, TID
     Route: 048
  4. RIONA [Suspect]
     Active Substance: FERRIC CITRATE ANHYDROUS
     Indication: HYPERPHOSPHATAEMIA
     Dosage: 250 MG, TID
     Route: 048
     Dates: start: 20170916, end: 20171026
  5. CRESTOR [Concomitant]
     Active Substance: ROSUVASTATIN CALCIUM
     Indication: DYSLIPIDAEMIA
     Dosage: 2.5 MG, QD
     Route: 048
  6. ALESION [Concomitant]
     Active Substance: EPINASTINE HYDROCHLORIDE
     Indication: SEASONAL ALLERGY
     Dosage: 20 MG, QD
     Route: 048
  7. NEXIUM [Concomitant]
     Active Substance: ESOMEPRAZOLE MAGNESIUM
     Indication: GASTROOESOPHAGEAL REFLUX DISEASE
     Dosage: 20 MG, QD
     Route: 048
  8. AMLODIN [Concomitant]
     Active Substance: AMLODIPINE BESYLATE
     Indication: HYPERTENSION
     Dosage: 5 MG, QD
     Route: 048
  9. FEBURIC [Concomitant]
     Active Substance: FEBUXOSTAT
     Indication: HYPERURICAEMIA
     Dosage: 5 MG, QD
     Route: 048
  10. LENDORMIN [Concomitant]
     Active Substance: BROTIZOLAM
     Indication: INSOMNIA
     Dosage: 0.25 MG, QD
     Route: 048

REACTIONS (3)
  - Hepatic function abnormal [Recovered/Resolved]
  - Diarrhoea [Recovered/Resolved]
  - Mesenteric panniculitis [Recovered/Resolved]

NARRATIVE: CASE EVENT DATE: 20170916
